FAERS Safety Report 9180944 (Version 1)
Quarter: 2013Q1

REPORT INFORMATION
  Report Type: Spontaneous
  Country: DE (occurrence: DE)
  Receive Date: 20130322
  Receipt Date: 20130322
  Transmission Date: 20140127
  Serious: Yes (Other)
  Sender: FDA-Public Use
  Company Number: PHHY2013DE027008

PATIENT
  Age: 85 Year
  Sex: 0

DRUGS (1)
  1. ZOLEDRONATE [Suspect]
     Indication: OSTEOPOROSIS
     Dosage: 5 MG/YEAR
     Route: 042

REACTIONS (2)
  - Osteonecrosis of jaw [Unknown]
  - T-lymphocyte count decreased [Unknown]
